FAERS Safety Report 5726614-4 (Version None)
Quarter: 2008Q2

REPORT INFORMATION
  Report Type: 
  Country: None (occurrence: None)
  Receive Date: 20080502
  Receipt Date: 20080424
  Transmission Date: 20081010
  Serious: Yes (Hospitalization)
  Sender: FDA-Public Use
  Company Number: BR-JNJFOC-20080406669

PATIENT
  Age: 20 Year
  Sex: Female
  Weight: 65 kg

DRUGS (1)
  1. ORTHO EVRA [Suspect]
     Indication: CONTRACEPTION

REACTIONS (2)
  - SUDDEN HEARING LOSS [None]
  - TINNITUS [None]
